FAERS Safety Report 4650949-X (Version None)
Quarter: 2005Q2

REPORT INFORMATION
  Report Type: 
  Country: None (occurrence: None)
  Receive Date: 20050503
  Receipt Date: 20050418
  Transmission Date: 20051028
  Serious: Yes (Other)
  Sender: FDA-Public Use
  Company Number: 2005-04-0534

PATIENT
  Age: 59 Year
  Sex: Male

DRUGS (5)
  1. ASPIRIN [Suspect]
     Indication: ILL-DEFINED DISORDER
     Route: 065
     Dates: start: 20050407
  2. HEPARIN [Suspect]
     Indication: ILL-DEFINED DISORDER
     Route: 065
     Dates: start: 20050407
  3. FENOFIBRATE [Concomitant]
     Indication: ILL-DEFINED DISORDER
     Route: 065
     Dates: start: 20050407
  4. LOPRESSOR [Concomitant]
     Indication: ILL-DEFINED DISORDER
     Route: 065
  5. INTEGRILIN [Concomitant]
     Indication: THERAPEUTIC PROCEDURE
     Route: 042
     Dates: start: 20050407, end: 20050408

REACTIONS (1)
  - THROMBOCYTOPENIA [None]
